FAERS Safety Report 9200399 (Version 1)
Quarter: 2013Q1

REPORT INFORMATION
  Report Type: Spontaneous
  Country: US (occurrence: US)
  Receive Date: 20130329
  Receipt Date: 20130329
  Transmission Date: 20140127
  Serious: Yes (Other)
  Sender: FDA-Public Use
  Company Number: CHPA2013US005369

PATIENT
  Age: 69 Year
  Sex: Male

DRUGS (1)
  1. EXCEDRIN EXTRA STRENGTH [Suspect]
     Indication: GOUT
     Dosage: 2 DF, EVERY 6 TO 8 HOURS
     Route: 048
     Dates: end: 2012

REACTIONS (4)
  - Diabetes mellitus [Not Recovered/Not Resolved]
  - Gout [Not Recovered/Not Resolved]
  - Therapeutic response unexpected [Unknown]
  - Off label use [Unknown]
